FAERS Safety Report 21614634 (Version 1)
Quarter: 2022Q4

REPORT INFORMATION
  Report Type: Report from Study
  Country: DE (occurrence: DE)
  Receive Date: 20221118
  Receipt Date: 20221118
  Transmission Date: 20230113
  Serious: Yes (Hospitalization, Other)
  Sender: FDA-Public Use
  Company Number: DE-EMA-DD-20221027-216281-074638

PATIENT
  Sex: Female

DRUGS (22)
  1. LEFLUNOMIDE [Suspect]
     Active Substance: LEFLUNOMIDE
     Indication: Rheumatoid arthritis
     Dosage: UNIT DOSE : 10 MG, THERAPY END DATE : ASKU
     Route: 065
     Dates: start: 20181217
  2. LEFLUNOMIDE [Suspect]
     Active Substance: LEFLUNOMIDE
     Dosage: UNIT DOSE : 10 MG, THERAPY END DATE : ASKU
     Route: 065
     Dates: start: 20191126
  3. LEFLUNOMIDE [Suspect]
     Active Substance: LEFLUNOMIDE
     Dosage: UNIT DOSE : 10 MG, THERAPY END DATE : ASKU
     Route: 065
     Dates: start: 20170606
  4. LEFLUNOMIDE [Suspect]
     Active Substance: LEFLUNOMIDE
     Dosage: UNIT DOSE : 10 MG, THERAPY END DATE : ASKU
     Route: 065
     Dates: start: 20170213
  5. LEFLUNOMIDE [Suspect]
     Active Substance: LEFLUNOMIDE
     Dosage: UNIT DOSE : 10 MG, THERAPY END DATE : ASKU
     Route: 065
     Dates: start: 20201207
  6. LEFLUNOMIDE [Suspect]
     Active Substance: LEFLUNOMIDE
     Dosage: UNIT DOSE : 10 MG, THERAPY END DATE : ASKU
     Route: 065
     Dates: start: 20190619
  7. LEFLUNOMIDE [Suspect]
     Active Substance: LEFLUNOMIDE
     Dosage: UNIT DOSE : 10 MG, THERAPY END DATE : ASKU
     Route: 065
     Dates: start: 20200603
  8. LEFLUNOMIDE [Suspect]
     Active Substance: LEFLUNOMIDE
     Dosage: UNIT DOSE : 10 MG, THERAPY END DATE : ASKU
     Route: 065
     Dates: start: 20180612
  9. LEFLUNOMIDE [Suspect]
     Active Substance: LEFLUNOMIDE
     Dosage: UNIT DOSE : 10 MG, THERAPY END DATE : ASKU
     Route: 065
     Dates: start: 20171212
  10. LEFLUNOMIDE [Suspect]
     Active Substance: LEFLUNOMIDE
     Dosage: UNIT DOSE : 10 MG, THERAPY END DATE : ASKU
     Route: 065
     Dates: start: 20161114
  11. METHOTREXATE [Suspect]
     Active Substance: METHOTREXATE
     Indication: Rheumatoid arthritis
     Dosage: UNIT DOSE : 10 MG, THERAPY END DATE : ASKU
     Dates: start: 20161114
  12. METHOTREXATE [Suspect]
     Active Substance: METHOTREXATE
     Dosage: UNIT DOSE : 10 MG, THERAPY END DATE : ASKU
     Route: 065
     Dates: start: 20170606
  13. METHOTREXATE [Suspect]
     Active Substance: METHOTREXATE
     Dosage: UNIT DOSE : 10 MG, THERAPY END DATE : ASKU
     Route: 065
     Dates: start: 20200603
  14. METHOTREXATE [Suspect]
     Active Substance: METHOTREXATE
     Dosage: UNIT DOSE : 10 MG, THERAPY END DATE : ASKU
     Route: 065
     Dates: start: 20171212
  15. METHOTREXATE [Suspect]
     Active Substance: METHOTREXATE
     Dosage: UNIT DOSE : 10 MG, THERAPY END DATE : ASKU
     Route: 065
     Dates: start: 20181217
  16. METHOTREXATE [Suspect]
     Active Substance: METHOTREXATE
     Dosage: UNIT DOSE : 10 MG, THERAPY END DATE : ASKU
     Route: 065
     Dates: start: 20170213
  17. METHOTREXATE [Suspect]
     Active Substance: METHOTREXATE
     Dosage: UNIT DOSE : 10 MG, THERAPY END DATE : ASKU
     Route: 065
     Dates: start: 20180612
  18. METHOTREXATE [Suspect]
     Active Substance: METHOTREXATE
     Dosage: UNIT DOSE : 10 MG, THERAPY END DATE : ASKU
     Route: 065
     Dates: start: 20190619
  19. METHOTREXATE [Suspect]
     Active Substance: METHOTREXATE
     Dosage: UNIT DOSE : 10 MG, THERAPY END DATE : ASKU
     Route: 065
     Dates: start: 20191126
  20. METHOTREXATE [Suspect]
     Active Substance: METHOTREXATE
     Dosage: UNIT DOSE : 15 MG, THERAPY END DATE : ASKU
     Route: 065
     Dates: start: 20201207
  21. SULFASALAZINE [Suspect]
     Active Substance: SULFASALAZINE
     Indication: Rheumatoid arthritis
     Dosage: UNIT DOSE : 500 MG, THERAPY END DATE : ASKU
     Route: 065
     Dates: start: 20170213
  22. SULFASALAZINE [Suspect]
     Active Substance: SULFASALAZINE
     Dosage: UNIT DOSE : 500 MG, THERAPY END DATE : ASKU
     Route: 065
     Dates: start: 20170606

REACTIONS (5)
  - Aortic valve stenosis [Not Recovered/Not Resolved]
  - Pneumonia [Recovered/Resolved]
  - Subarachnoid haemorrhage [Not Recovered/Not Resolved]
  - Pneumonia [Recovered/Resolved]
  - Pleural effusion [Unknown]

NARRATIVE: CASE EVENT DATE: 20170820
